FAERS Safety Report 20952519 (Version 1)
Quarter: 2022Q2

REPORT INFORMATION
  Report Type: Spontaneous
  Country: US (occurrence: None)
  Receive Date: 20220612
  Receipt Date: 20220612
  Transmission Date: 20220721
  Serious: No
  Sender: FDA-Public Use
  Company Number: None

PATIENT
  Age: 35 Year
  Sex: Female
  Weight: 51.75 kg

DRUGS (5)
  1. RISPERIDONE [Suspect]
     Active Substance: RISPERIDONE
     Indication: Personality disorder
     Dosage: OTHER QUANTITY : 1 TABLET(S);?FREQUENCY : TWICE A DAY;?
     Route: 048
     Dates: start: 20220521, end: 20220602
  2. LAMOTRIGINE [Concomitant]
     Active Substance: LAMOTRIGINE
  3. METHADONE [Concomitant]
     Active Substance: METHADONE HYDROCHLORIDE
  4. IBUPROFEN [Concomitant]
     Active Substance: IBUPROFEN
  5. TYLENOL [Concomitant]

REACTIONS (8)
  - Joint swelling [None]
  - Peripheral swelling [None]
  - Peripheral swelling [None]
  - Oedema peripheral [None]
  - Gait disturbance [None]
  - Eye haemorrhage [None]
  - Limb discomfort [None]
  - Skin burning sensation [None]

NARRATIVE: CASE EVENT DATE: 20220602
